FAERS Safety Report 4493433-9 (Version None)
Quarter: 2004Q4

REPORT INFORMATION
  Report Type: 
  Country: None (occurrence: None)
  Receive Date: 20041102
  Receipt Date: 20041025
  Transmission Date: 20050328
  Serious: Yes (Hospitalization)
  Sender: FDA-Public Use
  Company Number: 2004241259US

PATIENT
  Age: 74 Year
  Sex: Female
  Weight: 63 kg

DRUGS (4)
  1. CLEOCIN [Suspect]
     Indication: SIALOADENITIS
     Dosage: 150 MG, QID, ORAL
     Route: 048
     Dates: start: 20040901, end: 20040907
  2. EVISTA [Concomitant]
  3. VANCOMYCIN [Concomitant]
  4. FLAGYL [Concomitant]

REACTIONS (12)
  - ASTHENIA [None]
  - CHILLS [None]
  - CLOSTRIDIUM COLITIS [None]
  - COLD SWEAT [None]
  - DEHYDRATION [None]
  - FATIGUE [None]
  - HEADACHE [None]
  - ORAL DISCOMFORT [None]
  - PYREXIA [None]
  - REACTION TO FOOD ADDITIVE [None]
  - STOMATITIS [None]
  - WEIGHT DECREASED [None]
